FAERS Safety Report 15010184 (Version 1)
Quarter: 2018Q2

REPORT INFORMATION
  Report Type: Report from Study
  Country: None (occurrence: FR)
  Receive Date: 20180614
  Receipt Date: 20180614
  Transmission Date: 20180711
  Serious: Yes (Other)
  Sender: FDA-Public Use
  Company Number: FR-ABBVIE-18K-056-2385459-00

PATIENT
  Age: 70 Year
  Sex: Male

DRUGS (3)
  1. HUMIRA [Suspect]
     Active Substance: ADALIMUMAB
     Dosage: WEEK TWO
     Route: 058
     Dates: start: 201301, end: 201301
  2. HUMIRA [Suspect]
     Active Substance: ADALIMUMAB
     Indication: PSORIASIS
     Dosage: WEEK ZERO
     Route: 058
     Dates: start: 20130101, end: 20130101
  3. HUMIRA [Suspect]
     Active Substance: ADALIMUMAB
     Route: 058
     Dates: start: 2013

REACTIONS (2)
  - Osteonecrosis [Unknown]
  - Extremity necrosis [Unknown]

NARRATIVE: CASE EVENT DATE: 2014
